FAERS Safety Report 12825452 (Version 1)
Quarter: 2016Q4

REPORT INFORMATION
  Report Type: Spontaneous
  Country: US (occurrence: US)
  Receive Date: 20161007
  Receipt Date: 20161007
  Transmission Date: 20170207
  Serious: Yes (Life-Threatening)
  Sender: FDA-Public Use
  Company Number: None

PATIENT
  Age: 81 Year
  Sex: Male
  Weight: 82.4 kg

DRUGS (1)
  1. DEXTROSE/HEPARIN [Suspect]
     Active Substance: DEXTROSE\HEPARIN
     Indication: THROMBOSIS
     Route: 058
     Dates: start: 20160803, end: 20160805

REACTIONS (2)
  - Anaemia [None]
  - Thrombocytopenia [None]

NARRATIVE: CASE EVENT DATE: 20160804
